FAERS Safety Report 23221278 (Version 3)
Quarter: 2023Q4

REPORT INFORMATION
  Report Type: Spontaneous
  Country: CN (occurrence: CN)
  Receive Date: 20231123
  Receipt Date: 20231205
  Transmission Date: 20240110
  Serious: Yes (Other)
  Sender: FDA-Public Use
  Company Number: CN-PUMA BIOTECHNOLOGY, LTD.-2023-PUM-CN002005

PATIENT

DRUGS (2)
  1. NERLYNX [Suspect]
     Active Substance: NERATINIB
     Indication: Breast cancer
     Dosage: 6 TABLETS (240MG), DAILY
     Route: 048
     Dates: start: 202207, end: 202207
  2. NERLYNX [Suspect]
     Active Substance: NERATINIB
     Dosage: 6 TABLETS (240MG), DAILY
     Route: 048
     Dates: start: 202207, end: 202207

REACTIONS (6)
  - Breast cancer recurrent [Not Recovered/Not Resolved]
  - Metastases to bone [Not Recovered/Not Resolved]
  - Metastases to lung [Not Recovered/Not Resolved]
  - Metastases to liver [Not Recovered/Not Resolved]
  - Metastases to lymph nodes [Not Recovered/Not Resolved]
  - Diarrhoea [Recovered/Resolved]

NARRATIVE: CASE EVENT DATE: 20220701
